FAERS Safety Report 9203074 (Version 1)
Quarter: 2013Q1

REPORT INFORMATION
  Report Type: Spontaneous
  Country: GB (occurrence: None)
  Receive Date: 20130328
  Receipt Date: 20130328
  Transmission Date: 20140127
  Serious: Yes (Disabling)
  Sender: FDA-Public Use
  Company Number: GER/UKI/13/0028663

PATIENT
  Age: 56 Year
  Sex: Female

DRUGS (6)
  1. OLANZAPINE (OLANZAPINE) [Suspect]
     Indication: PRODUCT USED FOR UNKNOWN INDICATION
  2. FLUOXETINE (FLUOXETINE) [Suspect]
     Indication: ANXIETY
     Route: 048
     Dates: start: 20071119, end: 20120930
  3. FLUOXETINE (FLUOXETINE) [Suspect]
     Indication: DEPRESSION
     Route: 048
     Dates: start: 20071119, end: 20120930
  4. SIMVASTATIN (SIMVASTATIN) [Suspect]
     Indication: PRODUCT USED FOR UNKNOWN INDICATION
     Route: 048
     Dates: start: 20071119
  5. CO-CODAMOL (PANADEINE CO) [Concomitant]
  6. PARACETAMOL (PARACETAMOL) [Concomitant]

REACTIONS (3)
  - Arthralgia [None]
  - Myalgia [None]
  - Muscle spasms [None]
